FAERS Safety Report 9381334 (Version 3)
Quarter: 2022Q4

REPORT INFORMATION
  Report Type: Report from Study
  Country: US (occurrence: None)
  Receive Date: 20130703
  Receipt Date: 20221018
  Transmission Date: 20230113
  Serious: Yes (Hospitalization)
  Sender: FDA-Public Use
  Company Number: US-ROCHE-1242542

PATIENT
  Age: 49 Year
  Sex: Female
  Weight: 60 kg

DRUGS (3)
  1. BEVACIZUMAB [Suspect]
     Active Substance: BEVACIZUMAB
     Indication: Ovarian epithelial cancer
     Dosage: 15MG/KG OVER 30-90 MIN ON DAY 1 OF CYCLE 2, DATE OF LAST ADMINISTRATION: 03/APR/2013, INTERRUPTED FO
     Route: 042
     Dates: start: 20130220
  2. PACLITAXEL [Suspect]
     Active Substance: PACLITAXEL
     Indication: Ovarian epithelial cancer
     Dosage: 175MG/M2 OVER 3 HRS ON DAY 1, DATE OF LAST ADMINISTRATION: 03/APR/2013, INTERRUPTED FOR 14 DAYS
     Route: 042
     Dates: start: 20130220
  3. CARBOPLATIN [Suspect]
     Active Substance: CARBOPLATIN
     Indication: Ovarian epithelial cancer
     Dosage: AUC 5 OVER 60 MIN ON DAY 1, DATE OF LAST ADMINISTRATION: 03/APR/2013, INTERRUPTED FOR 14 DAYS
     Route: 042
     Dates: start: 20130220

REACTIONS (2)
  - Intra-abdominal fluid collection [Recovering/Resolving]
  - Abdominal infection [Unknown]

NARRATIVE: CASE EVENT DATE: 20130424
